FAERS Safety Report 4334239-0 (Version None)
Quarter: 2004Q2

REPORT INFORMATION
  Report Type: 
  Country: None (occurrence: None)
  Receive Date: 20040405
  Receipt Date: 20040326
  Transmission Date: 20050107
  Serious: Yes (Hospitalization)
  Sender: FDA-Public Use
  Company Number: 040329-0000325

PATIENT
  Age: 46 Year
  Sex: Male

DRUGS (1)
  1. METHAMPHETAMINE HCL(METHAMPHETAMINE HCL) [Suspect]

REACTIONS (16)
  - CHILLS [None]
  - DEPRESSION [None]
  - DRUG ABUSER [None]
  - DYSURIA [None]
  - FOREIGN BODY TRAUMA [None]
  - INSOMNIA [None]
  - OBSESSIVE-COMPULSIVE DISORDER [None]
  - PENILE INFECTION [None]
  - PENILE PAIN [None]
  - PENILE SWELLING [None]
  - SCAR [None]
  - SCROTAL ABSCESS [None]
  - SCROTAL OEDEMA [None]
  - SELF MUTILATION [None]
  - URETHRAL DISORDER [None]
  - URETHRAL FISTULA [None]
